FAERS Safety Report 5971687-7 (Version None)
Quarter: 2008Q4

REPORT INFORMATION
  Report Type: 
  Country: None (occurrence: None)
  Receive Date: 20081126
  Receipt Date: 20081126
  Transmission Date: 20090506
  Serious: No
  Sender: FDA-Public Use
  Company Number: None

PATIENT
  Sex: Female
  Weight: 80.45 kg

DRUGS (2)
  1. CARBOPLATIN [Suspect]
     Dosage: 283 MG
     Dates: end: 20080910
  2. TAXOL [Suspect]
     Dosage: 254 MG
     Dates: end: 20080910

REACTIONS (4)
  - HAEMATOCRIT DECREASED [None]
  - HAEMOGLOBIN DECREASED [None]
  - NEUTROPHIL COUNT DECREASED [None]
  - WHITE BLOOD CELL COUNT DECREASED [None]
